FAERS Safety Report 7171002-X (Version None)
Quarter: 2010Q4

REPORT INFORMATION
  Report Type: 
  Country: None (occurrence: None)
  Receive Date: 20101203
  Receipt Date: 20101124
  Transmission Date: 20110411
  Serious: Yes (Other)
  Sender: FDA-Public Use
  Company Number: 2010US004801

PATIENT
  Age: 56 Year
  Sex: Female

DRUGS (4)
  1. AMBISOME [Suspect]
     Indication: PANCREATITIS ACUTE
     Dosage: 2.5 MG/KG, UID/QD, IV NOS
     Route: 042
     Dates: start: 20101012, end: 20101015
  2. FOY (GABEXATE MESILATE) [Concomitant]
  3. INSULIN (INSULIN) [Concomitant]
  4. FAMOTIDINE [Concomitant]

REACTIONS (1)
  - ATRIOVENTRICULAR BLOCK SECOND DEGREE [None]
